FAERS Safety Report 15222162 (Version 6)
Quarter: 2022Q1

REPORT INFORMATION
  Report Type: Report from Study
  Country: AU (occurrence: AU)
  Receive Date: 20180731
  Receipt Date: 20220211
  Transmission Date: 20220423
  Serious: Yes (Hospitalization, Other)
  Sender: FDA-Public Use
  Company Number: PHHY2018AU056336

PATIENT
  Age: 3 Year
  Sex: Female
  Weight: 26.5 kg

DRUGS (7)
  1. DABRAFENIB [Suspect]
     Active Substance: DABRAFENIB
     Indication: Ganglioglioma
     Dosage: 50 MG, BID
     Route: 048
     Dates: start: 201705, end: 201806
  2. DABRAFENIB [Suspect]
     Active Substance: DABRAFENIB
     Indication: BRAF V600E mutation positive
     Dosage: UNK
     Route: 048
     Dates: start: 20180710
  3. DABRAFENIB [Suspect]
     Active Substance: DABRAFENIB
     Dosage: 55 MG, BID (150MG SACHETS)
     Route: 048
     Dates: start: 20181203
  4. DABRAFENIB [Suspect]
     Active Substance: DABRAFENIB
     Dosage: 60 MG, BID
     Route: 065
  5. DABRAFENIB [Suspect]
     Active Substance: DABRAFENIB
     Dosage: 30 UNK
     Route: 065
  6. MEKINIST [Suspect]
     Active Substance: TRAMETINIB DIMETHYL SULFOXIDE
     Indication: Ganglioglioma
     Dosage: 0.7 MG, QD,(0.032MG/KG GIVEN IN 2 DIVIDED DOSES 6 MONTHS )
     Route: 048
  7. MEKINIST [Suspect]
     Active Substance: TRAMETINIB DIMETHYL SULFOXIDE
     Indication: BRAF V600E mutation positive
     Dosage: 14 ML, QD (0.05 MG/ML)
     Route: 048
     Dates: start: 20181203

REACTIONS (8)
  - Metastases to spine [Recovered/Resolved]
  - Malignant neoplasm progression [Recovered/Resolved]
  - Ganglioglioma [Recovered/Resolved]
  - Weight increased [Unknown]
  - Weight decreased [Unknown]
  - Decreased appetite [Recovering/Resolving]
  - Fatigue [Recovering/Resolving]
  - Underdose [Unknown]

NARRATIVE: CASE EVENT DATE: 20180701
